FAERS Safety Report 5092615-5 (Version None)
Quarter: 2006Q3

REPORT INFORMATION
  Report Type: 
  Country: None (occurrence: None)
  Receive Date: 20060828
  Receipt Date: 20060815
  Transmission Date: 20061208
  Serious: Yes (Other)
  Sender: FDA-Public Use
  Company Number: 2006089263

PATIENT
  Age: 71 Year
  Sex: Male
  Weight: 97.0698 kg

DRUGS (7)
  1. SUTENT [Suspect]
     Indication: CLEAR CELL CARCINOMA OF THE KIDNEY
     Dosage: 50 MG (50 MG, 1 IN 1 D), ORAL
     Route: 048
     Dates: start: 20060502, end: 20060628
  2. ALL OTHER THERAPEUTIC PRODUCTS (ALL OTHER THERAPEUTIC PRODUCTS) [Concomitant]
  3. LOVASTATIN [Concomitant]
  4. HYDRALAZINE HCL [Concomitant]
  5. OXYCODONE (OXYCODONE) [Concomitant]
  6. TENORMIN [Concomitant]
  7. PRAZOSIN GITS [Concomitant]

REACTIONS (4)
  - DISEASE PROGRESSION [None]
  - GENERALISED OEDEMA [None]
  - RENAL FAILURE [None]
  - WEIGHT INCREASED [None]
